FAERS Safety Report 6359479-0 (Version None)
Quarter: 2009Q3

REPORT INFORMATION
  Report Type: 
  Country: None (occurrence: None)
  Receive Date: 20090917
  Receipt Date: 20090914
  Transmission Date: 20100115
  Serious: Yes (Other)
  Sender: FDA-Public Use
  Company Number: JP-BAYER-200911817BYL

PATIENT
  Age: 59 Year
  Sex: Female
  Weight: 40 kg

DRUGS (12)
  1. FLUDARA [Suspect]
     Indication: ACUTE LYMPHOCYTIC LEUKAEMIA
     Route: 042
     Dates: start: 20090113, end: 20090117
  2. ALKERAN [Concomitant]
     Indication: ACUTE LYMPHOCYTIC LEUKAEMIA
     Route: 042
     Dates: start: 20090116, end: 20090117
  3. CYLOCIDE [Concomitant]
     Indication: ACUTE LYMPHOCYTIC LEUKAEMIA
     Route: 037
     Dates: start: 20090112, end: 20090112
  4. PREDNISOLONE SODIUM SUCCINATE INJ [Concomitant]
     Indication: ACUTE LYMPHOCYTIC LEUKAEMIA
     Route: 037
     Dates: start: 20090112, end: 20090112
  5. METHOTREXATE [Concomitant]
     Route: 041
     Dates: start: 20090220, end: 20090220
  6. METHOTREXATE [Concomitant]
     Route: 041
     Dates: start: 20090222, end: 20090222
  7. METHOTREXATE [Concomitant]
     Route: 041
     Dates: start: 20090225, end: 20090225
  8. PROGRAF [Concomitant]
     Dosage: AS USED: 0.2-0.08 ML
     Route: 041
     Dates: start: 20090119, end: 20090209
  9. PROGRAF [Concomitant]
     Dosage: AS USED: 0.18-0.16 ML
     Route: 041
     Dates: start: 20090211, end: 20090217
  10. CELLCEPT [Concomitant]
     Dosage: TOTAL DAILY DOSE: 2250 MG  UNIT DOSE: 250 MG
     Route: 048
     Dates: start: 20090221, end: 20090407
  11. CONCENTRATED RED CELLS [Concomitant]
     Indication: PACKED RED BLOOD CELL TRANSFUSION
     Route: 042
     Dates: start: 20090116, end: 20090215
  12. PLATELETS [Concomitant]
     Indication: PLATELET TRANSFUSION
     Route: 042
     Dates: start: 20090124, end: 20090219

REACTIONS (3)
  - ACUTE GRAFT VERSUS HOST DISEASE IN INTESTINE [None]
  - ACUTE GRAFT VERSUS HOST DISEASE IN SKIN [None]
  - CYTOMEGALOVIRUS VIRAEMIA [None]
